FAERS Safety Report 4704627-9 (Version None)
Quarter: 2005Q2

REPORT INFORMATION
  Report Type: 
  Country: None (occurrence: None)
  Receive Date: 20050630
  Receipt Date: 20050627
  Transmission Date: 20051028
  Serious: Yes (Other)
  Sender: FDA-Public Use
  Company Number: US-MERCK-0506USA03744

PATIENT
  Age: 83 Year
  Sex: Female

DRUGS (8)
  1. FOSAMAX [Suspect]
     Indication: OSTEOPOROSIS
     Route: 048
     Dates: start: 20020101, end: 20040101
  2. COUMADIN [Concomitant]
     Route: 065
  3. COREG [Concomitant]
     Route: 065
  4. COZAAR [Concomitant]
     Route: 048
  5. MULTIVITAMIN [Concomitant]
     Route: 065
  6. LIPITOR [Concomitant]
     Route: 065
  7. ASCORBIC ACID [Concomitant]
     Route: 065
  8. [THERAPY UNSPECIFIED] [Concomitant]
     Route: 065

REACTIONS (3)
  - DYSPEPSIA [None]
  - DYSPHAGIA [None]
  - MYOCARDIAL INFARCTION [None]
